FAERS Safety Report 5093892-7 (Version None)
Quarter: 2006Q3

REPORT INFORMATION
  Report Type: 
  Country: None (occurrence: None)
  Receive Date: 20060728
  Receipt Date: 20060623
  Transmission Date: 20061208
  Serious: No
  Sender: FDA-Public Use
  Company Number: 254382

PATIENT
  Age: 66 Year
  Sex: Female
  Weight: 90.7 kg

DRUGS (12)
  1. LEVEMIR [Suspect]
     Indication: INSULIN-REQUIRING TYPE II DIABETES MELLITUS
     Dosage: SUBCUTANEOUS
     Route: 058
     Dates: start: 20060401
  2. GLUCOPHAGE [Concomitant]
  3. AMARYL [Concomitant]
  4. PLAVIX [Concomitant]
  5. TOPROL-XL [Concomitant]
  6. ISOSORBIDE (ISOSORBIDE) [Concomitant]
  7. ACCUPRIL [Concomitant]
  8. ASPIRIN [Concomitant]
  9. CELEXA [Concomitant]
  10. TORSEMIDE [Concomitant]
  11. LIPITOR [Concomitant]
  12. CARDURA [Concomitant]

REACTIONS (1)
  - BLOOD GLUCOSE INCREASED [None]
